FAERS Safety Report 4389505-X (Version None)
Quarter: 2004Q2

REPORT INFORMATION
  Report Type: 
  Country: None (occurrence: None)
  Receive Date: 20040628
  Receipt Date: 20040621
  Transmission Date: 20050107
  Serious: Yes (Life-Threatening, Hospitalization)
  Sender: FDA-Public Use
  Company Number: US-JNJFOC-2004065763

PATIENT
  Age: 71 Year
  Sex: Male

DRUGS (1)
  1. REMINYL [Suspect]
     Indication: DEMENTIA ALZHEIMER'S TYPE
     Dosage: 4 MG, 2 IN 1 D, ORAL
     Route: 048
     Dates: start: 20040412

REACTIONS (2)
  - CARDIO-RESPIRATORY ARREST [None]
  - MYOCARDIAL INFARCTION [None]
